FAERS Safety Report 14014407 (Version 1)
Quarter: 2017Q3

REPORT INFORMATION
  Report Type: Spontaneous
  Country: US (occurrence: US)
  Receive Date: 20170926
  Receipt Date: 20170926
  Transmission Date: 20171128
  Serious: Yes (Other)
  Sender: FDA-Public Use
  Company Number: None

PATIENT
  Age: 28 Year
  Sex: Male
  Weight: 76.5 kg

DRUGS (2)
  1. PROAIR RESPICLICK [Suspect]
     Active Substance: ALBUTEROL SULFATE
     Indication: ASTHMA
     Dosage: ?          QUANTITY:1 INHALATION(S);?
     Route: 055
     Dates: start: 20170926, end: 20170926
  2. PRO AIR INHALER [Concomitant]

REACTIONS (4)
  - Device ineffective [None]
  - Product quality issue [None]
  - Asthma [None]
  - Device issue [None]

NARRATIVE: CASE EVENT DATE: 20170925
